FAERS Safety Report 5284981-2 (Version None)
Quarter: 2007Q2

REPORT INFORMATION
  Report Type: 
  Country: None (occurrence: None)
  Receive Date: 20070403
  Receipt Date: 20061018
  Transmission Date: 20071010
  Serious: Yes (Other)
  Sender: FDA-Public Use
  Company Number: US-PFIZER INC-2006125264

PATIENT
  Sex: Female
  Weight: 61.2 kg

DRUGS (2)
  1. XANAX [Suspect]
     Indication: BIPOLAR DISORDER
     Dosage: DAILY DOSE:1MG
  2. XANAX XR [Suspect]
     Dosage: DAILY DOSE:2MG

REACTIONS (28)
  - ACTIVITIES OF DAILY LIVING IMPAIRED [None]
  - AGEUSIA [None]
  - AGITATION [None]
  - ANGER [None]
  - APATHY [None]
  - ARTHRALGIA [None]
  - BLADDER DISORDER [None]
  - BRONCHITIS [None]
  - CONFUSIONAL STATE [None]
  - DECREASED APPETITE [None]
  - DEPENDENCE [None]
  - DISTURBANCE IN ATTENTION [None]
  - DRUG INEFFECTIVE [None]
  - FEELING ABNORMAL [None]
  - INFECTION [None]
  - INSOMNIA [None]
  - IRRITABLE BOWEL SYNDROME [None]
  - LOSS OF LIBIDO [None]
  - MALAISE [None]
  - MOOD ALTERED [None]
  - OEDEMA PERIPHERAL [None]
  - PAIN [None]
  - PANIC REACTION [None]
  - PARANOIA [None]
  - PERSONALITY CHANGE [None]
  - PSYCHIATRIC SYMPTOM [None]
  - RASH [None]
  - SUICIDAL IDEATION [None]
